FAERS Safety Report 6141420-7 (Version None)
Quarter: 2009Q2

REPORT INFORMATION
  Report Type: 
  Country: None (occurrence: None)
  Receive Date: 20090402
  Receipt Date: 20090323
  Transmission Date: 20091009
  Serious: Yes (Hospitalization)
  Sender: FDA-Public Use
  Company Number: NL-AMGEN-UK340183

PATIENT
  Age: 75 Year
  Sex: Male
  Weight: 90 kg

DRUGS (5)
  1. ARANESP [Suspect]
     Route: 058
     Dates: start: 20060925
  2. MARCUMAR [Concomitant]
     Route: 048
  3. SERETIDE [Concomitant]
     Route: 047
  4. FERROFUMARAT [Concomitant]
     Route: 048
     Dates: start: 20060925
  5. PRIMPERAN [Concomitant]
     Route: 048
     Dates: start: 20060910

REACTIONS (1)
  - ATRIAL FIBRILLATION [None]
